FAERS Safety Report 7319054-8 (Version None)
Quarter: 2011Q1

REPORT INFORMATION
  Report Type: 
  Country: None (occurrence: None)
  Receive Date: 20110228
  Receipt Date: 20100827
  Transmission Date: 20110831
  Serious: Yes (Hospitalization)
  Sender: FDA-Public Use
  Company Number: US-BAYER-200942204NA

PATIENT
  Sex: Female
  Weight: 58 kg

DRUGS (16)
  1. YAZ [Suspect]
     Indication: PREMENSTRUAL SYNDROME
     Route: 048
     Dates: start: 20070816, end: 20071126
  2. ORTHO TRI-CYCLEN [Concomitant]
     Indication: PAIN
     Dosage: UNK
     Dates: start: 20030101, end: 20070809
  3. NORTRIPTYLINE [Concomitant]
     Indication: HYPOAESTHESIA
     Dates: start: 20071221, end: 20071226
  4. GLYCOLAX [Concomitant]
  5. FIORICET [Concomitant]
     Indication: HEADACHE
     Dates: start: 20070501, end: 20071126
  6. TRAMADOL [Concomitant]
  7. ULTRAM [Concomitant]
     Indication: PAIN
  8. HEPARIN [Concomitant]
     Dates: start: 20071101, end: 20071207
  9. YAZ [Suspect]
  10. YAZ [Suspect]
     Indication: ACNE
  11. ACETAMINOPHEN [Concomitant]
  12. DIFFERIN [Concomitant]
     Indication: HEADACHE
  13. SARAFEM [Concomitant]
     Indication: PREMENSTRUAL SYNDROME
  14. PAMELOR [Concomitant]
  15. NORTRIPTYLINE [Concomitant]
     Dates: start: 20071201
  16. NORTRIPTYLINE [Concomitant]
     Dosage: 40 MG (DAILY DOSE), ,

REACTIONS (7)
  - TRAUMATIC BRAIN INJURY [None]
  - COGNITIVE DISORDER [None]
  - MENTAL DISORDER [None]
  - ANXIETY [None]
  - GAIT DISTURBANCE [None]
  - DEPRESSION [None]
  - CEREBRAL VENOUS THROMBOSIS [None]
